FAERS Safety Report 6471176-X (Version None)
Quarter: 2009Q4

REPORT INFORMATION
  Report Type: 
  Country: None (occurrence: None)
  Receive Date: 20091203
  Receipt Date: 20080129
  Transmission Date: 20100525
  Serious: Yes (Hospitalization)
  Sender: FDA-Public Use
  Company Number: US-ELI_LILLY_AND_COMPANY-US200801006411

PATIENT
  Sex: Female
  Weight: 79.592 kg

DRUGS (11)
  1. BYETTA [Suspect]
     Dosage: 10 UG, 2/D
     Dates: start: 20050601
  2. BYETTA [Suspect]
     Dosage: 5 UG, UNKNOWN
  3. BYETTA [Suspect]
     Dosage: 10 UG, 2/D
     Dates: end: 20070814
  4. LEVEMIR [Concomitant]
     Dosage: 50 UNK, 2/D
  5. LEVEMIR [Concomitant]
     Dosage: 80 U, EACH EVENING
  6. FORTAMET [Concomitant]
     Dosage: 1000 MG, 2/D
  7. LEXAPRO [Concomitant]
     Dosage: 10 MG, DAILY (1/D)
  8. CRESTOR [Concomitant]
     Dosage: 10 MG, EACH EVENING
  9. ALLEGRA D                          /01367401/ [Concomitant]
     Dosage: UNK, AS NEEDED
  10. ASPIRIN [Concomitant]
     Dosage: 81 MG, DAILY (1/D)
  11. OMACOR [Concomitant]
     Dosage: 2 UNK, 2/D

REACTIONS (5)
  - MICROALBUMINURIA [None]
  - NAUSEA [None]
  - NEUROPATHY PERIPHERAL [None]
  - PANCREATITIS [None]
  - VOMITING [None]
